FAERS Safety Report 5488813-9 (Version None)
Quarter: 2007Q4

REPORT INFORMATION
  Report Type: 
  Country: None (occurrence: None)
  Receive Date: 20071016
  Receipt Date: 20071004
  Transmission Date: 20080405
  Serious: Yes (Disabling)
  Sender: FDA-Public Use
  Company Number: 2007EU002196

PATIENT
  Sex: Male

DRUGS (2)
  1. PROGRAF [Suspect]
     Dosage: D
  2. MYCOPHENOLATE MOFETIL [Concomitant]

REACTIONS (1)
  - INFERTILITY [None]
